FAERS Safety Report 6148042-2 (Version None)
Quarter: 2009Q2

REPORT INFORMATION
  Report Type: 
  Country: None (occurrence: None)
  Receive Date: 20090408
  Receipt Date: 20090401
  Transmission Date: 20091009
  Serious: Yes (Hospitalization)
  Sender: FDA-Public Use
  Company Number: A0716260A

PATIENT
  Age: 59 Year
  Sex: Female
  Weight: 84.1 kg

DRUGS (11)
  1. AVANDIA [Suspect]
     Dosage: 8MG PER DAY
     Route: 048
     Dates: start: 20010522, end: 20070920
  2. MULTI-VITAMIN [Concomitant]
  3. LEVOTHYROXINE SODIUM [Concomitant]
  4. LANTUS [Concomitant]
  5. LENTE [Concomitant]
  6. PROZAC [Concomitant]
  7. THYROXINE [Concomitant]
  8. PREMARIN [Concomitant]
  9. RANITIDINE [Concomitant]
  10. GLUCOTROL [Concomitant]
  11. ACCUPRIL [Concomitant]

REACTIONS (4)
  - ACUTE MYOCARDIAL INFARCTION [None]
  - CARDIAC FAILURE CONGESTIVE [None]
  - CEREBROVASCULAR ACCIDENT [None]
  - CORONARY ARTERY DISEASE [None]
